FAERS Safety Report 21026847 (Version 1)
Quarter: 2022Q2

REPORT INFORMATION
  Report Type: Spontaneous
  Country: CA (occurrence: CA)
  Receive Date: 20220630
  Receipt Date: 20220630
  Transmission Date: 20220721
  Serious: Yes (Other)
  Sender: FDA-Public Use
  Company Number: CA-PFIZER INC-202200902821

PATIENT
  Age: 76 Year
  Sex: Male

DRUGS (2)
  1. METHOTREXATE SODIUM [Suspect]
     Active Substance: METHOTREXATE SODIUM
     Dosage: 25 MG, WEEKLY
     Route: 065
  2. LEUCOVORIN [Concomitant]
     Active Substance: LEUCOVORIN
     Dosage: 1 DF, DOSAGE INFO UNK
     Route: 065

REACTIONS (6)
  - Rheumatoid arthritis [Unknown]
  - Discomfort [Unknown]
  - Joint swelling [Unknown]
  - Nodule [Unknown]
  - Joint effusion [Unknown]
  - Hand deformity [Unknown]

NARRATIVE: CASE EVENT DATE: 20220101
